FAERS Safety Report 6764263-X (Version None)
Quarter: 2010Q2

REPORT INFORMATION
  Report Type: 
  Country: None (occurrence: None)
  Receive Date: 20100610
  Receipt Date: 20100427
  Transmission Date: 20101027
  Serious: Yes (Hospitalization, Other)
  Sender: FDA-Public Use
  Company Number: US-BAXTER-2010BH001480

PATIENT
  Age: 62 Year
  Sex: Male
  Weight: 73 kg

DRUGS (6)
  1. HEPARIN SODIUM INJECTION [Suspect]
     Indication: VASCULAR GRAFT
     Route: 065
     Dates: start: 20041015
  2. HEPARIN SODIUM INJECTION [Suspect]
     Route: 065
     Dates: start: 20041016
  3. HEPARIN SODIUM INJECTION [Suspect]
     Route: 065
     Dates: start: 20041021
  4. HEPARIN SODIUM INJECTION [Suspect]
     Route: 065
     Dates: start: 20041022
  5. METOPROLOL TARTRATE [Concomitant]
     Indication: DRUG USE FOR UNKNOWN INDICATION
     Route: 048
  6. ASPIRIN [Concomitant]
     Indication: DRUG USE FOR UNKNOWN INDICATION
     Route: 048

REACTIONS (9)
  - ATRIAL FIBRILLATION [None]
  - BLINDNESS [None]
  - BLOOD PRESSURE DECREASED [None]
  - OXYGEN SATURATION DECREASED [None]
  - PNEUMONIA HAEMOPHILUS [None]
  - PNEUMONIA STREPTOCOCCAL [None]
  - SINUS TACHYCARDIA [None]
  - THROMBOSIS [None]
  - VASCULAR GRAFT OCCLUSION [None]
